FAERS Safety Report 8246586-0 (Version None)
Quarter: 2012Q1

REPORT INFORMATION
  Report Type: 
  Country: None (occurrence: None)
  Receive Date: 20120330
  Receipt Date: 20120323
  Transmission Date: 20120608
  Serious: Yes (Hospitalization, Other)
  Sender: FDA-Public Use
  Company Number: PHHY2011FR88989

PATIENT
  Sex: Female

DRUGS (16)
  1. TEGRETOL [Suspect]
     Dosage: 800 MG
     Dates: start: 20020703, end: 20110406
  2. LAMICTAL [Suspect]
     Dosage: 350 MG
     Dates: start: 20060601
  3. URBANYL [Suspect]
     Dosage: 25 MG
  4. LANSOYL [Concomitant]
  5. LAMICTAL [Suspect]
     Dosage: 25 MG EVERY 2 DAYS
     Dates: start: 20040801
  6. LAMICTAL [Suspect]
     Dosage: 450 MG
     Dates: start: 20110804
  7. URBANYL [Suspect]
     Dosage: 10 MG, BID
     Dates: start: 20020703, end: 20100210
  8. TEGRETOL [Suspect]
     Indication: EPILEPSY
     Dosage: 200 MG, TID
     Route: 048
     Dates: start: 20010221, end: 20020703
  9. TRILEPTAL [Concomitant]
     Dosage: 150 MG, DAILY
     Route: 048
  10. TOPREC [Concomitant]
  11. TEGRETOL [Suspect]
     Dosage: 100 MG
     Route: 048
     Dates: start: 20110603
  12. LAMOTRGINE [Concomitant]
  13. DOMPERIDONE [Concomitant]
  14. TRILEPTAL [Concomitant]
     Indication: EPILEPSY
     Dosage: 300 MG, QD
     Route: 048
     Dates: start: 20110601, end: 20110801
  15. VIMPAT [Concomitant]
     Indication: EPILEPSY
     Dosage: 100 MG, BID
     Route: 048
     Dates: start: 20110406
  16. LUTENYL [Concomitant]

REACTIONS (10)
  - CHRONIC HEPATITIS [None]
  - HEPATIC FUNCTION ABNORMAL [None]
  - CHOLELITHIASIS [None]
  - DRUG INTOLERANCE [None]
  - MALAISE [None]
  - ALANINE AMINOTRANSFERASE INCREASED [None]
  - FRONTAL LOBE EPILEPSY [None]
  - AGGRESSION [None]
  - GAMMA-GLUTAMYLTRANSFERASE INCREASED [None]
  - CONVULSION [None]
